FAERS Safety Report 4541235-7 (Version None)
Quarter: 2004Q4

REPORT INFORMATION
  Report Type: 
  Country: None (occurrence: None)
  Receive Date: 20041228
  Receipt Date: 20041215
  Transmission Date: 20050328
  Serious: Yes (Other)
  Sender: FDA-Public Use
  Company Number: A03200402325

PATIENT
  Age: 74 Year
  Sex: Male

DRUGS (7)
  1. LEUPROLIDE ACETATE [Suspect]
     Indication: PROSTATE CANCER
     Dosage: 22.5 MG Q3M - SUBCUTANEOUS
     Route: 058
     Dates: start: 20040329, end: 20040501
  2. AMLODIPINE BESYLATE [Concomitant]
  3. BISOPROLOL FUMARATE AND HYDROCHLOROTHIAZIDE [Concomitant]
  4. ACETYLSALICYLIC ACID SRT [Concomitant]
  5. HYDROCHLOROTHIAZIDE [Concomitant]
  6. GLUCOSAMINE [Concomitant]
  7. BICALUTAMIDE [Concomitant]

REACTIONS (4)
  - INJECTION SITE ABSCESS [None]
  - NECROSIS [None]
  - SECRETION DISCHARGE [None]
  - SKIN REACTION [None]
